FAERS Safety Report 16317002 (Version 1)
Quarter: 2019Q2

REPORT INFORMATION
  Report Type: Spontaneous
  Country: US (occurrence: US)
  Receive Date: 20190515
  Receipt Date: 20190515
  Transmission Date: 20190711
  Serious: No
  Sender: FDA-Public Use
  Company Number: US-SA-2019SA121265

PATIENT

DRUGS (1)
  1. UNISOM SLEEPTABS [Suspect]
     Active Substance: DOXYLAMINE SUCCINATE
     Indication: MIDDLE INSOMNIA
     Dosage: USE TO TAKE THIS UNTIL  WOULD RANDOMLY WAKE UP IN THE MIDDLE OF THE NIGHT

REACTIONS (1)
  - Unevaluable event [Unknown]
